FAERS Safety Report 10916559 (Version 1)
Quarter: 2015Q1

REPORT INFORMATION
  Report Type: Spontaneous
  Country: US (occurrence: None)
  Receive Date: 20150312
  Receipt Date: 20150312
  Transmission Date: 20150721
  Serious: No
  Sender: FDA-Public Use
  Company Number: None

PATIENT
  Age: 38 Year
  Sex: Female
  Weight: 61.24 kg

DRUGS (1)
  1. SUBOXONE [Suspect]
     Active Substance: BUPRENORPHINE HYDROCHLORIDE\NALOXONE HYDROCHLORIDE
     Indication: PAIN
     Dosage: SUBOXONE TAKEN UNDER THE TONGUE
     Dates: start: 20150227, end: 20150311

REACTIONS (4)
  - Tongue blistering [None]
  - Tongue discolouration [None]
  - Glossodynia [None]
  - Glossitis [None]

NARRATIVE: CASE EVENT DATE: 20150309
